FAERS Safety Report 12853107 (Version 1)
Quarter: 2016Q4

REPORT INFORMATION
  Report Type: Spontaneous
  Country: US (occurrence: US)
  Receive Date: 20161016
  Receipt Date: 20161016
  Transmission Date: 20170207
  Serious: Yes (Disabling)
  Sender: FDA-Public Use
  Company Number: None

PATIENT
  Age: 51 Year
  Sex: Female
  Weight: 90 kg

DRUGS (8)
  1. KRILL OIL [Concomitant]
     Active Substance: DIETARY SUPPLEMENT
  2. CIPROFLOXACIN HCL 500MG TABS WEST-W [Suspect]
     Active Substance: CIPROFLOXACIN HYDROCHLORIDE
     Indication: URINARY TRACT INFECTION
     Dosage: ?          QUANTITY:14 TABLET(S);?
     Route: 048
     Dates: start: 20160913, end: 20160918
  3. ZOLOFT [Concomitant]
     Active Substance: SERTRALINE HYDROCHLORIDE
  4. VITAMIN D [Concomitant]
     Active Substance: CHOLECALCIFEROL
  5. VITAMIN E [Concomitant]
     Active Substance: .ALPHA.-TOCOPHEROL
  6. MAGNESIUM [Concomitant]
     Active Substance: MAGNESIUM
  7. EXCEDRIN [Concomitant]
     Active Substance: ACETAMINOPHEN\ASPIRIN\CAFFEINE
  8. VITAMIN C [Concomitant]
     Active Substance: ASCORBIC ACID

REACTIONS (24)
  - Anxiety [None]
  - Chest pain [None]
  - Peripheral swelling [None]
  - Dizziness [None]
  - Impaired work ability [None]
  - Palpitations [None]
  - Insomnia [None]
  - Osteomyelitis [None]
  - Fatigue [None]
  - Apathy [None]
  - Neuropathy peripheral [None]
  - Burning sensation [None]
  - Myalgia [None]
  - Urinary tract infection [None]
  - Feeling abnormal [None]
  - Infection [None]
  - Panic attack [None]
  - Pain in extremity [None]
  - Arthralgia [None]
  - Paraesthesia [None]
  - Depression [None]
  - Musculoskeletal stiffness [None]
  - Neuralgia [None]
  - Toxicity to various agents [None]

NARRATIVE: CASE EVENT DATE: 20160918
